FAERS Safety Report 8142818-8 (Version None)
Quarter: 2012Q1

REPORT INFORMATION
  Report Type: 
  Country: None (occurrence: None)
  Receive Date: 20120216
  Receipt Date: 20120207
  Transmission Date: 20120608
  Serious: Yes (Hospitalization)
  Sender: FDA-Public Use
  Company Number: FR-ASTRAZENECA-2012SE03805

PATIENT
  Age: 24961 Day
  Sex: Female
  Weight: 68 kg

DRUGS (6)
  1. FORADIL [Concomitant]
  2. DEPAKOTE [Concomitant]
     Route: 048
  3. BECLOMETHASONE DIPROPIONATE [Concomitant]
  4. QUETIAPINE FUMARATE [Suspect]
     Indication: BIPOLAR DISORDER
     Route: 048
     Dates: start: 20111101
  5. VENLAFAXINE [Concomitant]
     Indication: DEPRESSIVE SYMPTOM
     Route: 048
  6. LT03 [Suspect]
     Indication: VITAMIN SUPPLEMENTATION
     Route: 048
     Dates: start: 20111201, end: 20120118

REACTIONS (1)
  - LEUKOCYTOCLASTIC VASCULITIS [None]
